FAERS Safety Report 6997256-8 (Version None)
Quarter: 2010Q3

REPORT INFORMATION
  Report Type: 
  Country: None (occurrence: None)
  Receive Date: 20100918
  Receipt Date: 20090928
  Transmission Date: 20110219
  Serious: No
  Sender: FDA-Public Use
  Company Number: US-WYE-H11243509

PATIENT
  Sex: Female
  Weight: 74.91 kg

DRUGS (10)
  1. PRISTIQ [Suspect]
     Indication: DEPRESSION
     Dosage: TOOK 2 TABLETS TODAY (100 MG)
     Route: 048
     Dates: start: 20090928
  2. AMBIEN [Concomitant]
  3. SIMVASTATIN [Concomitant]
  4. LEVOTHYROXINE [Concomitant]
  5. GABAPENTIN [Concomitant]
  6. VITAMIN TAB [Concomitant]
  7. TRAZODONE HCL [Concomitant]
  8. CLONAZEPAM [Concomitant]
  9. LEXAPRO [Concomitant]
  10. ASPIRIN [Concomitant]

REACTIONS (2)
  - DRUG INEFFECTIVE [None]
  - INTENTIONAL DRUG MISUSE [None]
